FAERS Safety Report 8462708-0 (Version None)
Quarter: 2012Q2

REPORT INFORMATION
  Report Type: 
  Country: None (occurrence: None)
  Receive Date: 20120625
  Receipt Date: 20120619
  Transmission Date: 20120825
  Serious: Yes (Hospitalization)
  Sender: FDA-Public Use
  Company Number: DE-ELI_LILLY_AND_COMPANY-DE201206005909

PATIENT
  Sex: Female

DRUGS (4)
  1. ERGOCALCIFEROL [Concomitant]
     Dosage: UNK, UNKNOWN
     Route: 065
  2. METPROLOL [Concomitant]
     Dosage: UNK, UNKNOWN
     Route: 065
  3. FORTEO [Suspect]
     Indication: OSTEOPOROSIS
     Dosage: UNK, QD
     Route: 058
     Dates: start: 20110629
  4. CELEBREX [Concomitant]
     Dosage: UNK, UNKNOWN
     Route: 065

REACTIONS (2)
  - EMBOLISM [None]
  - EYE DISORDER [None]
